FAERS Safety Report 5849168-0 (Version None)
Quarter: 2008Q3

REPORT INFORMATION
  Report Type: 
  Country: None (occurrence: None)
  Receive Date: 20080819
  Receipt Date: 20080813
  Transmission Date: 20090109
  Serious: Yes (Other)
  Sender: FDA-Public Use
  Company Number: US-JNJFOC-20080803254

PATIENT
  Sex: Female

DRUGS (2)
  1. TYLENOL W/ CODEINE [Suspect]
     Indication: DRUG USE FOR UNKNOWN INDICATION
     Route: 048
  2. CORTEF [Concomitant]
     Indication: ADDISON'S DISEASE
     Route: 065

REACTIONS (1)
  - ADRENOCORTICAL INSUFFICIENCY ACUTE [None]
